FAERS Safety Report 4645887-2 (Version None)
Quarter: 2005Q2

REPORT INFORMATION
  Report Type: 
  Country: None (occurrence: None)
  Receive Date: 20050427
  Receipt Date: 20050419
  Transmission Date: 20051028
  Serious: Yes (Other)
  Sender: FDA-Public Use
  Company Number: US-JNJFOC-20050404629

PATIENT
  Age: 8 Year
  Sex: Female

DRUGS (1)
  1. DITROPAN XL [Suspect]
     Route: 049

REACTIONS (1)
  - OBSESSIVE-COMPULSIVE DISORDER [None]
